FAERS Safety Report 4652203-9 (Version None)
Quarter: 2005Q2

REPORT INFORMATION
  Report Type: 
  Country: None (occurrence: None)
  Receive Date: 20050502
  Receipt Date: 20050422
  Transmission Date: 20051028
  Serious: Yes (Hospitalization)
  Sender: FDA-Public Use
  Company Number: 2005SE02435

PATIENT
  Age: 61 Year
  Sex: Male

DRUGS (2)
  1. BLOPRESS [Suspect]
     Indication: HYPERTENSION
  2. ADALAT [Suspect]

REACTIONS (3)
  - BLOOD PRESSURE SYSTOLIC DECREASED [None]
  - COLD SWEAT [None]
  - LOSS OF CONSCIOUSNESS [None]
